FAERS Safety Report 24237015 (Version 1)
Quarter: 2024Q3

REPORT INFORMATION
  Report Type: Report from Study
  Country: IE (occurrence: IE)
  Receive Date: 20240822
  Receipt Date: 20240822
  Transmission Date: 20241016
  Serious: Yes (Other)
  Sender: ROCHE
  Company Number: IE-ROCHE-3155826

PATIENT
  Sex: Female

DRUGS (1)
  1. OCREVUS [Suspect]
     Active Substance: OCRELIZUMAB
     Indication: Product used for unknown indication
     Dosage: 300MGS X 2 VIALS
     Route: 042

REACTIONS (6)
  - Fatigue [Recovering/Resolving]
  - COVID-19 [Recovering/Resolving]
  - Gingivitis [Recovering/Resolving]
  - Mouth ulceration [Recovering/Resolving]
  - Limb discomfort [Recovering/Resolving]
  - Herpes zoster [Recovering/Resolving]
